FAERS Safety Report 9702565 (Version 1)
Quarter: 2013Q4

REPORT INFORMATION
  Report Type: Spontaneous
  Country: US (occurrence: US)
  Receive Date: 20131121
  Receipt Date: 20131121
  Transmission Date: 20140711
  Serious: Yes (Other)
  Sender: FDA-Public Use
  Company Number: US-SPECTRUM PHARMACEUTICALS, INC.-13-F-US-00067

PATIENT
  Age: 73 Year
  Sex: Female
  Weight: 69.84 kg

DRUGS (1)
  1. FOLOTYN [Suspect]
     Indication: PERIPHERAL T-CELL LYMPHOMA UNSPECIFIED
     Dosage: 50 MG, SINGLE
     Route: 042
     Dates: start: 20121218, end: 20121218

REACTIONS (2)
  - Thrombocytopenia [Not Recovered/Not Resolved]
  - Rash maculo-papular [Unknown]
